FAERS Safety Report 17811933 (Version 1)
Quarter: 2020Q2

REPORT INFORMATION
  Report Type: Spontaneous
  Country: GB (occurrence: GB)
  Receive Date: 20200521
  Receipt Date: 20200521
  Transmission Date: 20200714
  Serious: Yes (Other)
  Sender: FDA-Public Use
  Company Number: GB-TEVA-2020-GB-1237248

PATIENT
  Age: 43 Year
  Sex: Female
  Weight: 101.6 kg

DRUGS (2)
  1. PREDNISOLONE. [Suspect]
     Active Substance: PREDNISOLONE
     Route: 065
  2. DUPIXENT [Suspect]
     Active Substance: DUPILUMAB
     Indication: DERMATITIS ATOPIC
     Dosage: 1 DOSAGE FORMS
     Route: 051
     Dates: start: 20200123

REACTIONS (7)
  - Steroid withdrawal syndrome [Unknown]
  - Erythema [Not Recovered/Not Resolved]
  - Maternal exposure during pregnancy [Unknown]
  - Oral herpes [Recovered/Resolved]
  - Pain of skin [Unknown]
  - Abortion spontaneous [Recovered/Resolved]
  - Herpes zoster [Recovering/Resolving]

NARRATIVE: CASE EVENT DATE: 20200323
